FAERS Safety Report 17075969 (Version 6)
Quarter: 2021Q3

REPORT INFORMATION
  Report Type: Spontaneous
  Country: US (occurrence: US)
  Receive Date: 20191126
  Receipt Date: 20210728
  Transmission Date: 20211014
  Serious: Yes (Hospitalization, Other)
  Sender: FDA-Public Use
  Company Number: US-GILEAD-2019-0439507

PATIENT
  Age: 42 Year
  Sex: Male
  Weight: 109.3 kg

DRUGS (48)
  1. METFORMIN [Concomitant]
     Active Substance: METFORMIN HYDROCHLORIDE
     Dosage: UNK
     Dates: end: 2019
  2. PROAIR HFA [Concomitant]
     Active Substance: ALBUTEROL SULFATE
  3. DDAVP [Concomitant]
     Active Substance: DESMOPRESSIN ACETATE
  4. TYLENOL [Concomitant]
     Active Substance: ACETAMINOPHEN
  5. HYDROXYZINE PAM [Concomitant]
     Active Substance: HYDROXYZINE PAMOATE
  6. CLOTRIMAZOLE. [Concomitant]
     Active Substance: CLOTRIMAZOLE
  7. TRAZODONE [Concomitant]
     Active Substance: TRAZODONE HYDROCHLORIDE
  8. ALLOPURINOL. [Concomitant]
     Active Substance: ALLOPURINOL
  9. MUPIROCIN. [Concomitant]
     Active Substance: MUPIROCIN
  10. VENLAFAXINE [Concomitant]
     Active Substance: VENLAFAXINE HYDROCHLORIDE
  11. HEPARIN [Concomitant]
     Active Substance: HEPARIN SODIUM
  12. MILK OF MAGNESIA [Concomitant]
     Active Substance: MAGNESIUM HYDROXIDE
  13. AMOXICILLIN. [Concomitant]
     Active Substance: AMOXICILLIN
  14. POLYMYXIN B ?TRIMETHOPRIM OPHTHA. [Concomitant]
  15. ERYTHROMYCIN. [Concomitant]
     Active Substance: ERYTHROMYCIN
  16. INFLUENZA VACCINE [Concomitant]
     Active Substance: INFLUENZA VIRUS VACCINE
  17. HYDRALAZINE [Concomitant]
     Active Substance: HYDRALAZINE HYDROCHLORIDE
  18. DEXTROSE WATER [Concomitant]
     Active Substance: DEXTROSE
  19. ATORVASTATIN [Concomitant]
     Active Substance: ATORVASTATIN
  20. VIRTUSSIN AC [Concomitant]
     Active Substance: CODEINE PHOSPHATE\GUAIFENESIN
  21. LANTUS [Concomitant]
     Active Substance: INSULIN GLARGINE
     Dosage: UNK
     Dates: start: 201902
  22. HUMALOG [Concomitant]
     Active Substance: INSULIN LISPRO
  23. OSELTAMIVIR [Concomitant]
     Active Substance: OSELTAMIVIR
  24. JANUVIA [Concomitant]
     Active Substance: SITAGLIPTIN PHOSPHATE
     Dosage: UNK
     Dates: end: 201812
  25. COLACE [Concomitant]
     Active Substance: DOCUSATE SODIUM
  26. MAALOX ADVANCED [CALCIUM CARBONATE;SIMETICONE] [Concomitant]
  27. GLIMEPIRIDE. [Concomitant]
     Active Substance: GLIMEPIRIDE
  28. GLIPIZIDE. [Concomitant]
     Active Substance: GLIPIZIDE
     Dosage: UNK
     Dates: start: 2018, end: 2018
  29. AZITHROMYCIN ANHYDROUS. [Concomitant]
     Active Substance: AZITHROMYCIN ANHYDROUS
  30. DOXYCYCLINE HYCLATE. [Concomitant]
     Active Substance: DOXYCYCLINE HYCLATE
  31. SODIUM CHLORIDE. [Concomitant]
     Active Substance: SODIUM CHLORIDE
  32. TRUVADA [Suspect]
     Active Substance: EMTRICITABINE\TENOFOVIR DISOPROXIL FUMARATE
     Indication: PROPHYLAXIS AGAINST HIV INFECTION
     Dosage: 200?300 MG, QD
     Route: 048
     Dates: start: 20170317, end: 20190520
  33. DICYCLOMINE [DICYCLOVERINE HYDROCHLORIDE] [Concomitant]
     Active Substance: DICYCLOMINE HYDROCHLORIDE
  34. LAMOTRIGINE. [Concomitant]
     Active Substance: LAMOTRIGINE
  35. PREDNISONE. [Concomitant]
     Active Substance: PREDNISONE
     Dosage: UNK
     Dates: start: 201903, end: 201910
  36. FUROSEMIDE. [Concomitant]
     Active Substance: FUROSEMIDE
  37. CEPHALEXIN [CEFALEXIN] [Concomitant]
     Active Substance: CEPHALEXIN
  38. NORMAL SALINE [Concomitant]
     Active Substance: SODIUM CHLORIDE
  39. ASPIRIN (E.C.) [Concomitant]
     Active Substance: ASPIRIN
  40. FLUVIRIN [INFLUENZA VACCINE INACT SAG 3V] [Concomitant]
  41. BETAMETHASONE. [Concomitant]
     Active Substance: BETAMETHASONE
  42. ONDANSETRON [Concomitant]
     Active Substance: ONDANSETRON
  43. PEPCID [Concomitant]
     Active Substance: FAMOTIDINE
  44. CEPHALEXIN [CEFALEXIN] [Concomitant]
     Active Substance: CEPHALEXIN
  45. AMLODIPINE BESYLATE. [Concomitant]
     Active Substance: AMLODIPINE BESYLATE
  46. LATUDA [Concomitant]
     Active Substance: LURASIDONE HYDROCHLORIDE
  47. PROCRIT [Concomitant]
     Active Substance: ERYTHROPOIETIN
  48. BUSPIRONE [Concomitant]
     Active Substance: BUSPIRONE HYDROCHLORIDE

REACTIONS (12)
  - Acute kidney injury [Not Recovered/Not Resolved]
  - Emotional distress [Unknown]
  - Chronic kidney disease [Not Recovered/Not Resolved]
  - Chronic kidney disease [Not Recovered/Not Resolved]
  - Anxiety [Not Recovered/Not Resolved]
  - Depression [Not Recovered/Not Resolved]
  - Fear of disease [Not Recovered/Not Resolved]
  - Anhedonia [Unknown]
  - Renal failure [Not Recovered/Not Resolved]
  - Pain [Unknown]
  - Tubulointerstitial nephritis [Not Recovered/Not Resolved]
  - Economic problem [Unknown]

NARRATIVE: CASE EVENT DATE: 201902
